FAERS Safety Report 7685746-4 (Version None)
Quarter: 2011Q3

REPORT INFORMATION
  Report Type: 
  Country: None (occurrence: None)
  Receive Date: 20110815
  Receipt Date: 20110815
  Transmission Date: 20111222
  Serious: Yes (Other)
  Sender: FDA-Public Use
  Company Number: None

PATIENT
  Sex: Female
  Weight: 90.718 kg

DRUGS (2)
  1. FLUOXETINE HYDROCHLORIDE [Suspect]
     Indication: ANGER
     Dosage: 20 MG
     Route: 048
  2. FLUOXETINE HYDROCHLORIDE [Suspect]
     Indication: IRRITABILITY
     Dosage: 20 MG
     Route: 048

REACTIONS (4)
  - PRODUCT SUBSTITUTION ISSUE [None]
  - IRRITABILITY [None]
  - DRUG INEFFECTIVE [None]
  - WEIGHT INCREASED [None]
